FAERS Safety Report 7632626-6 (Version None)
Quarter: 2011Q3

REPORT INFORMATION
  Report Type: 
  Country: None (occurrence: None)
  Receive Date: 20110725
  Receipt Date: 20101129
  Transmission Date: 20111222
  Serious: No
  Sender: FDA-Public Use
  Company Number: US-BRISTOL-MYERS SQUIBB COMPANY-15365968

PATIENT
  Age: 17 Year
  Sex: Female
  Weight: 84 kg

DRUGS (6)
  1. SYNTHROID [Concomitant]
  2. CLARITIN [Concomitant]
  3. WARFARIN SODIUM [Suspect]
     Indication: COAGULOPATHY
     Dates: start: 20100906
  4. COUMADIN [Suspect]
     Indication: COAGULOPATHY
     Dosage: ALTERNATIVELY RECEIVED 2.5MG
  5. PLAQUENIL [Concomitant]
  6. SINGULAIR [Concomitant]

REACTIONS (1)
  - DRUG ERUPTION [None]
